FAERS Safety Report 8009419-3 (Version None)
Quarter: 2011Q4

REPORT INFORMATION
  Report Type: 
  Country: None (occurrence: None)
  Receive Date: 20111227
  Receipt Date: 20111216
  Transmission Date: 20120403
  Serious: Yes (Death, Other)
  Sender: FDA-Public Use
  Company Number: JP-ROCHE-752877

PATIENT
  Sex: Male
  Weight: 51 kg

DRUGS (11)
  1. GANATON [Concomitant]
     Indication: PROPHYLAXIS OF NAUSEA AND VOMITING
     Route: 048
     Dates: start: 20101130, end: 20101203
  2. PANVITAN [Concomitant]
     Indication: PROPHYLAXIS
     Route: 048
     Dates: start: 20101125, end: 20100101
  3. OXYCONTIN [Concomitant]
     Route: 048
     Dates: start: 20101206, end: 20101207
  4. CARBOPLATIN [Suspect]
     Indication: NON-SMALL CELL LUNG CANCER METASTATIC
     Route: 041
     Dates: start: 20101130, end: 20101130
  5. ALIMTA [Suspect]
     Indication: NON-SMALL CELL LUNG CANCER METASTATIC
     Dosage: DRUG NAME: ALIMTA (PEMETREXED SODIUM HYDRATE)
     Route: 041
     Dates: start: 20101130, end: 20101130
  6. LANSOPRAZOLE [Concomitant]
     Route: 048
     Dates: start: 20100625, end: 20100101
  7. NOVAMIN [Concomitant]
     Indication: PROPHYLAXIS OF NAUSEA AND VOMITING
     Route: 048
     Dates: start: 20101130, end: 20101203
  8. OXYCONTIN [Concomitant]
     Route: 048
     Dates: start: 20101110, end: 20101205
  9. OXYCONTIN [Concomitant]
     Route: 048
     Dates: start: 20101208, end: 20100101
  10. AVASTIN [Suspect]
     Indication: NON-SMALL CELL LUNG CANCER
     Route: 041
     Dates: start: 20101130, end: 20101130
  11. OXYCONTIN [Concomitant]
     Indication: CANCER PAIN
     Route: 048
     Dates: start: 20101108, end: 20101109

REACTIONS (8)
  - NEUTROPHIL COUNT DECREASED [None]
  - CONTUSION [None]
  - EPISTAXIS [None]
  - DISEASE PROGRESSION [None]
  - FALL [None]
  - BONE MARROW FAILURE [None]
  - BLOOD UREA INCREASED [None]
  - BLOOD PRESSURE DECREASED [None]
